FAERS Safety Report 25508742 (Version 2)
Quarter: 2025Q4

REPORT INFORMATION
  Report Type: Spontaneous
  Country: US (occurrence: US)
  Receive Date: 20250703
  Receipt Date: 20251007
  Transmission Date: 20260118
  Serious: No
  Sender: CHATTEM
  Company Number: US-OPELLA-2025OHG019629

PATIENT
  Sex: Male

DRUGS (2)
  1. ALLEGRA ALLERGY [Suspect]
     Active Substance: FEXOFENADINE HYDROCHLORIDE
     Indication: Hypersensitivity
     Dosage: 2 PILLS EVERY SIX OR EIGHT HOURS
     Route: 065
  2. ALLEGRA ALLERGY [Suspect]
     Active Substance: FEXOFENADINE HYDROCHLORIDE
     Dosage: 4 ALLEGRA 24HR TABLET IN A DAY (2 TABLETS AT 7AM AND ANOTHER 2 AT 12 NOON)
     Route: 065

REACTIONS (4)
  - Condition aggravated [Unknown]
  - Eye pruritus [Unknown]
  - Lacrimation increased [Unknown]
  - Intentional product misuse [Unknown]
